FAERS Safety Report 9004468 (Version 1)
Quarter: 2013Q1

REPORT INFORMATION
  Report Type: Spontaneous
  Country: US (occurrence: None)
  Receive Date: 20130103
  Receipt Date: 20130103
  Transmission Date: 20140127
  Serious: Yes (Other)
  Sender: FDA-Public Use
  Company Number: None

PATIENT
  Age: 56 Year
  Sex: Female
  Weight: 125.19 kg

DRUGS (1)
  1. SAVELLA [Suspect]
     Dosage: 25MG Q HS PO
     Route: 048
     Dates: start: 20121220, end: 20121229

REACTIONS (5)
  - Contusion [None]
  - Hyperhidrosis [None]
  - Hot flush [None]
  - Vascular rupture [None]
  - Eye disorder [None]
